FAERS Safety Report 18220982 (Version 2)
Quarter: 2020Q3

REPORT INFORMATION
  Report Type: Report from Study
  Country: None (occurrence: US)
  Receive Date: 20200902
  Receipt Date: 20200926
  Transmission Date: 20201103
  Serious: Yes (Hospitalization)
  Sender: FDA-Public Use
  Company Number: US-ABBVIE-20K-163-3544599-00

PATIENT
  Sex: Male

DRUGS (1)
  1. HUMIRA [Suspect]
     Active Substance: ADALIMUMAB
     Indication: CROHN^S DISEASE
     Dosage: CITRATE FREE
     Route: 058

REACTIONS (6)
  - Acute kidney injury [Unknown]
  - Arthritis infective [Recovering/Resolving]
  - Intestinal obstruction [Recovering/Resolving]
  - Arrhythmia [Unknown]
  - Pneumonia [Unknown]
  - Large intestinal obstruction [Unknown]

NARRATIVE: CASE EVENT DATE: 2020
